FAERS Safety Report 21963159 (Version 5)
Quarter: 2023Q2

REPORT INFORMATION
  Report Type: Spontaneous
  Country: US (occurrence: US)
  Receive Date: 20230207
  Receipt Date: 20230622
  Transmission Date: 20230722
  Serious: Yes (Other)
  Sender: FDA-Public Use
  Company Number: US-PFIZER INC-202300051814

PATIENT
  Age: 57 Year
  Sex: Male
  Weight: 74.39 kg

DRUGS (18)
  1. XELJANZ XR [Suspect]
     Active Substance: TOFACITINIB CITRATE
     Indication: Illness
     Dosage: 11 MG, 1X/DAY
     Route: 048
     Dates: start: 20200311
  2. XELJANZ XR [Suspect]
     Active Substance: TOFACITINIB CITRATE
     Indication: Movement disorder
     Dosage: 11 MG, 1X/DAY
     Route: 048
     Dates: start: 20230303
  3. XELJANZ XR [Suspect]
     Active Substance: TOFACITINIB CITRATE
     Indication: Rheumatoid arthritis
     Dosage: 11 MG, DAILY
     Route: 048
  4. ATORVASTATIN [Concomitant]
     Active Substance: ATORVASTATIN
     Indication: Blood cholesterol increased
     Dosage: 10 MG, 1X/DAY
     Route: 048
  5. LISINOPRIL [Concomitant]
     Active Substance: LISINOPRIL
     Indication: Essential hypertension
     Dosage: 40 MG, 1X/DAY
     Route: 048
  6. MELOXICAM [Concomitant]
     Active Substance: MELOXICAM
     Indication: Inflammation
     Dosage: 15 MG, AS NEEDED
  7. MELOXICAM [Concomitant]
     Active Substance: MELOXICAM
     Indication: Arthralgia
     Dosage: 15 MG, 1X/DAY
     Route: 048
  8. METFORMIN [Concomitant]
     Active Substance: METFORMIN HYDROCHLORIDE
     Indication: Blood glucose increased
     Dosage: 1000 MG, 2X/DAY (2 TIMES EVERY DAY WITH MORINING AND EVENING MEALS)
     Route: 048
  9. OZEMPIC [Concomitant]
     Active Substance: SEMAGLUTIDE
     Indication: Blood glucose increased
     Dosage: 1 MG, WEEKLY (INJECTED INTO THE STOMACH, BEEN ON IT FOR FOUR MONTHS)
  10. OZEMPIC [Concomitant]
     Active Substance: SEMAGLUTIDE
     Dosage: 0.25 MG, WEEKLY (FOR 4 WEEKS))
     Route: 058
  11. OZEMPIC [Concomitant]
     Active Substance: SEMAGLUTIDE
     Dosage: 0.5 MG, WEEKLY (FOR 2 WEEKS)
     Route: 058
  12. ZOLPIDEM [Concomitant]
     Active Substance: ZOLPIDEM TARTRATE
     Indication: Sleep disorder
     Dosage: 10 MG, 1X/DAY (AT NIGHT)
  13. AMLODIPINE [Concomitant]
     Active Substance: AMLODIPINE BESYLATE
     Indication: Essential hypertension
     Dosage: 10 MG, 1X/DAY
     Route: 048
  14. LEFLUNOMIDE [Concomitant]
     Active Substance: LEFLUNOMIDE
     Dosage: 20 MG, 1X/DAY
     Route: 048
     Dates: start: 20221121
  15. FOSAMAX [Concomitant]
     Active Substance: ALENDRONATE SODIUM
     Indication: Senile osteoporosis
     Dosage: 70 MG, WEEKLY (IN THE MORNING AT LEAST 30 MINUTES BEFORE FIRST FOOD, DRINK OR MEDICATIONS)
     Dates: start: 20221228
  16. AMBIEN [Concomitant]
     Active Substance: ZOLPIDEM TARTRATE
     Indication: Psychophysiologic insomnia
     Dosage: UNK, 1X/DAY (QHS)
     Route: 048
     Dates: start: 20220322
  17. AMBIEN [Concomitant]
     Active Substance: ZOLPIDEM TARTRATE
     Dosage: 10 MG, 1X/DAY (EVERY DAY AT BED TIME)
     Route: 048
     Dates: start: 20230119
  18. ARAVA [Concomitant]
     Active Substance: LEFLUNOMIDE
     Indication: Rheumatoid arthritis
     Dosage: 20 MG, WEEKLY

REACTIONS (10)
  - Renal failure [Unknown]
  - Tendonitis [Unknown]
  - Memory impairment [Unknown]
  - Pain [Recovering/Resolving]
  - Myofascial pain syndrome [Unknown]
  - Pain in extremity [Unknown]
  - Trigger finger [Unknown]
  - Overweight [Unknown]
  - Neck pain [Recovering/Resolving]
  - Back pain [Recovering/Resolving]

NARRATIVE: CASE EVENT DATE: 20211217
